FAERS Safety Report 5317200-9 (Version None)
Quarter: 2007Q2

REPORT INFORMATION
  Report Type: 
  Country: None (occurrence: None)
  Receive Date: 20070504
  Receipt Date: 20070423
  Transmission Date: 20071010
  Serious: Yes (Death)
  Sender: FDA-Public Use
  Company Number: JP-GENENTECH-240661

PATIENT
  Age: 58 Year
  Sex: Male

DRUGS (8)
  1. RITUXIMAB [Suspect]
     Indication: LIVER TRANSPLANT
     Dosage: 375 MG/M2, 1/WEEK
  2. PLASMA EXCHANGE [Concomitant]
     Indication: LIVER TRANSPLANT
  3. TACROLIMUS [Concomitant]
     Indication: IMMUNOSUPPRESSION
  4. STEROIDS (UNK INGREDIENTS) [Concomitant]
     Indication: IMMUNOSUPPRESSION
  5. MYCOPHENOLATE MOFETIL [Concomitant]
     Indication: IMMUNOSUPPRESSION
  6. PROSTAGLANDIN E [Concomitant]
     Indication: DRUG USE FOR UNKNOWN INDICATION
  7. METHYLPREDNISOLONE 16MG TAB [Concomitant]
     Indication: DRUG USE FOR UNKNOWN INDICATION
  8. PROTEASE INHIBITOR [Concomitant]
     Indication: DRUG USE FOR UNKNOWN INDICATION

REACTIONS (4)
  - BONE MARROW FAILURE [None]
  - CYTOMEGALOVIRUS INFECTION [None]
  - PNEUMOCYSTIS JIROVECI INFECTION [None]
  - SEPSIS [None]
